FAERS Safety Report 11862416 (Version 1)
Quarter: 2015Q4

REPORT INFORMATION
  Report Type: Spontaneous
  Country: US (occurrence: None)
  Receive Date: 20151222
  Receipt Date: 20151222
  Transmission Date: 20160305
  Serious: Yes (Hospitalization, Disabling)
  Sender: FDA-Public Use
  Company Number: None

PATIENT
  Age: 29 Year
  Sex: Male
  Weight: 107.96 kg

DRUGS (1)
  1. HYDROXYZINE PILL 50 MG [Suspect]
     Active Substance: HYDROXYZINE HYDROCHLORIDE
     Indication: ANXIETY

REACTIONS (2)
  - Photophobia [None]
  - Diarrhoea [None]

NARRATIVE: CASE EVENT DATE: 20151219
